FAERS Safety Report 9600996 (Version 2)
Quarter: 2013Q4

REPORT INFORMATION
  Report Type: Spontaneous
  Country: US (occurrence: US)
  Receive Date: 20131004
  Receipt Date: 20131004
  Transmission Date: 20140711
  Serious: No
  Sender: FDA-Public Use
  Company Number: US-AMGEN-USASP2013038196

PATIENT
  Age: 62 Year
  Sex: Male
  Weight: 117.91 kg

DRUGS (7)
  1. ENBREL [Suspect]
     Indication: RHEUMATOID ARTHRITIS
     Dosage: 50 MG, QWK
     Route: 058
  2. LIPITOR [Concomitant]
     Dosage: 40 MG, UNK
  3. LISINOPRIL [Concomitant]
     Dosage: 2.5 MG, UNK
  4. DOXYCYCLINE [Concomitant]
     Dosage: 20 MG, UNK
  5. PRAMIPEXOLE [Concomitant]
     Dosage: 0.5 MG, UNK
  6. PANTOPRAZOLE [Concomitant]
     Dosage: 40 MG, UNK
  7. MELATONIN [Concomitant]
     Dosage: 3 MG, CR

REACTIONS (1)
  - Psoriasis [Unknown]
